FAERS Safety Report 8306210-5 (Version None)
Quarter: 2012Q2

REPORT INFORMATION
  Report Type: 
  Country: None (occurrence: None)
  Receive Date: 20120423
  Receipt Date: 20120416
  Transmission Date: 20120825
  Serious: Yes (Disabling)
  Sender: FDA-Public Use
  Company Number: FR-GILEAD-2012-0049272

PATIENT
  Sex: Male

DRUGS (1)
  1. ATRIPLA [Suspect]
     Indication: HIV INFECTION
     Dosage: UNK
     Route: 048
     Dates: start: 20100805, end: 20111010

REACTIONS (4)
  - MYALGIA [None]
  - ASTHENIA [None]
  - EXTRAPYRAMIDAL DISORDER [None]
  - NERVOUS SYSTEM DISORDER [None]
